FAERS Safety Report 14789059 (Version 2)
Quarter: 2018Q2

REPORT INFORMATION
  Report Type: Spontaneous
  Country: JP (occurrence: JP)
  Receive Date: 20180423
  Receipt Date: 20180423
  Transmission Date: 20180711
  Serious: Yes (Hospitalization, Other)
  Sender: FDA-Public Use
  Company Number: JP-ROCHE-2109199

PATIENT
  Age: 68 Year
  Sex: Male

DRUGS (2)
  1. TACROLIMUS HYDRATE [Concomitant]
     Active Substance: TACROLIMUS
     Dosage: DOSE INTERVAL UNCERTAINTY
     Route: 065
  2. ACTEMRA [Suspect]
     Active Substance: TOCILIZUMAB
     Indication: RHEUMATOID ARTHRITIS
     Route: 058

REACTIONS (4)
  - Squamous cell carcinoma of lung [Unknown]
  - Tracheo-oesophageal fistula [Unknown]
  - Lymphoma [Unknown]
  - Bronchopulmonary aspergillosis [Unknown]
